FAERS Safety Report 23346004 (Version 1)
Quarter: 2023Q4

REPORT INFORMATION
  Report Type: Spontaneous
  Country: US (occurrence: US)
  Receive Date: 20231228
  Receipt Date: 20231228
  Transmission Date: 20240109
  Serious: No
  Sender: FDA-Public Use
  Company Number: US-009507513-2311USA011039

PATIENT
  Age: 49 Year
  Sex: Female

DRUGS (8)
  1. EMEND (FOSAPREPITANT DIMEGLUMINE) [Suspect]
     Active Substance: FOSAPREPITANT DIMEGLUMINE
     Indication: Nausea
     Dosage: 150 MILLIGRAM, ONCE
     Route: 042
  2. EMEND (FOSAPREPITANT DIMEGLUMINE) [Suspect]
     Active Substance: FOSAPREPITANT DIMEGLUMINE
     Dosage: 150 MILLIGRAM, ONCE
     Route: 042
  3. EMEND (FOSAPREPITANT DIMEGLUMINE) [Suspect]
     Active Substance: FOSAPREPITANT DIMEGLUMINE
     Dosage: 150 MILLIGRAM, ONCE
     Route: 042
  4. EMEND (FOSAPREPITANT DIMEGLUMINE) [Suspect]
     Active Substance: FOSAPREPITANT DIMEGLUMINE
     Dosage: 150 MILLIGRAM, ONCE
     Route: 042
  5. LORAZEPAM [Concomitant]
     Active Substance: LORAZEPAM
     Indication: Nausea
     Dosage: 1 MILLIGRAM, Q6H
     Route: 042
  6. LORAZEPAM [Concomitant]
     Active Substance: LORAZEPAM
     Dosage: 1 MILLIGRAM, Q4H
     Route: 042
  7. DIPHENHYDRAMINE [Concomitant]
     Active Substance: DIPHENHYDRAMINE
     Indication: Nausea
     Dosage: 25 MILLIGRAM, Q6H
     Route: 042
  8. DIPHENHYDRAMINE [Concomitant]
     Active Substance: DIPHENHYDRAMINE
     Dosage: 50 MILLIGRAM, Q6H
     Route: 042

REACTIONS (1)
  - Off label use [Unknown]
